FAERS Safety Report 7773376-5 (Version None)
Quarter: 2011Q3

REPORT INFORMATION
  Report Type: 
  Country: None (occurrence: None)
  Receive Date: 20110922
  Receipt Date: 20110913
  Transmission Date: 20111222
  Serious: Yes (Other)
  Sender: FDA-Public Use
  Company Number: JP-ASTRAZENECA-2011SE55288

PATIENT
  Age: 42 Year
  Sex: Female

DRUGS (3)
  1. SYMBICORT [Suspect]
     Dosage: 30 DOSES, 3 DF TWO TIMES A DAY
     Route: 055
     Dates: start: 20110901, end: 20110909
  2. TEOFURMATE [Suspect]
     Route: 048
     Dates: start: 20110901, end: 20110909
  3. SINGULAIR [Suspect]
     Route: 048
     Dates: start: 20110901, end: 20110909

REACTIONS (1)
  - STEVENS-JOHNSON SYNDROME [None]
